FAERS Safety Report 9851196 (Version 1)
Quarter: 2014Q1

REPORT INFORMATION
  Report Type: Spontaneous
  Country: BR (occurrence: BR)
  Receive Date: 20140128
  Receipt Date: 20140128
  Transmission Date: 20141002
  Serious: Yes (Other)
  Sender: FDA-Public Use
  Company Number: BR-ABBVIE-14P-020-1195295-00

PATIENT
  Age: 32 Year
  Sex: Female
  Weight: 69.8 kg

DRUGS (5)
  1. SYNTHROID [Suspect]
     Indication: HYPOTHYROIDISM
     Dates: start: 201212
  2. SYNTHROID [Suspect]
  3. SYNTHROID [Suspect]
     Dosage: 1 TABLET (75 MICROGRAM) IN THE MORNING, FASTING
     Route: 048
  4. FOLIC ACID [Concomitant]
     Indication: PRODUCT USED FOR UNKNOWN INDICATION
  5. NUVARING [Concomitant]
     Indication: CONTRACEPTION
     Route: 067
     Dates: start: 201310

REACTIONS (3)
  - Foetal death [Unknown]
  - Abortion incomplete [Unknown]
  - Urinary tract infection [Unknown]
